FAERS Safety Report 24879880 (Version 1)
Quarter: 2025Q1

REPORT INFORMATION
  Report Type: Report from Study
  Country: DE (occurrence: DE)
  Receive Date: 20250123
  Receipt Date: 20250123
  Transmission Date: 20250409
  Serious: Yes (Other)
  Sender: UCB
  Company Number: DE-UCBSA-2024021399

PATIENT
  Age: 36 Year
  Sex: Male
  Weight: 91.6 kg

DRUGS (10)
  1. BIMEKIZUMAB [Suspect]
     Active Substance: BIMEKIZUMAB
     Indication: Psoriatic arthropathy
     Dosage: 320 MILLIGRAM, MONTHLY (QM)
     Route: 058
     Dates: start: 20240105, end: 20240301
  2. BIMEKIZUMAB [Suspect]
     Active Substance: BIMEKIZUMAB
     Dosage: 160 MILLIGRAM, MONTHLY (QM)
     Route: 058
     Dates: start: 20240419
  3. BIMEKIZUMAB [Suspect]
     Active Substance: BIMEKIZUMAB
     Dosage: 160 MILLIGRAM, MONTHLY (QM)
     Route: 058
     Dates: start: 20240517
  4. BIMEKIZUMAB [Suspect]
     Active Substance: BIMEKIZUMAB
     Dosage: 160 MILLIGRAM, MONTHLY (QM)
     Route: 058
     Dates: start: 20240616
  5. BIMEKIZUMAB [Suspect]
     Active Substance: BIMEKIZUMAB
     Dosage: 160 MILLIGRAM, MONTHLY (QM)
     Route: 058
     Dates: start: 20240717
  6. BIMEKIZUMAB [Suspect]
     Active Substance: BIMEKIZUMAB
     Dosage: 160 MILLIGRAM, MONTHLY (QM)
     Route: 058
     Dates: start: 20240818
  7. BIMEKIZUMAB [Suspect]
     Active Substance: BIMEKIZUMAB
     Dosage: 160 MILLIGRAM, MONTHLY (QM)
     Route: 058
     Dates: start: 20240917
  8. BIMEKIZUMAB [Suspect]
     Active Substance: BIMEKIZUMAB
     Dosage: 160 MILLIGRAM, MONTHLY (QM) (TEMPORARILY INTERRUPTED)
     Route: 058
     Dates: start: 20241018
  9. IBUPROFEN [Concomitant]
     Active Substance: IBUPROFEN
     Indication: Back pain
     Dosage: 600 MILLIGRAM, ONCE DAILY (QD)
     Dates: start: 20240617, end: 20240620
  10. IBUPROFEN [Concomitant]
     Active Substance: IBUPROFEN
     Indication: Contusion
     Dosage: 600 MILLIGRAM, 2X/DAY (BID)
     Dates: start: 20240818, end: 20240908

REACTIONS (11)
  - Pneumonia [Recovered/Resolved]
  - Oropharyngeal candidiasis [Recovered/Resolved]
  - Folliculitis [Recovered/Resolved with Sequelae]
  - Subcutaneous abscess [Recovered/Resolved]
  - Back pain [Recovering/Resolving]
  - Thoracic outlet syndrome [Recovered/Resolved]
  - Hypertension [Recovered/Resolved]
  - Fall [Recovered/Resolved]
  - Contusion [Recovered/Resolved]
  - Headache [Recovered/Resolved]
  - Laryngitis [Recovering/Resolving]

NARRATIVE: CASE EVENT DATE: 20240215
